FAERS Safety Report 19855453 (Version 1)
Quarter: 2021Q3

REPORT INFORMATION
  Report Type: Spontaneous
  Country: US (occurrence: US)
  Receive Date: 20210918
  Receipt Date: 20210918
  Transmission Date: 20211014
  Serious: Yes (Hospitalization)
  Sender: FDA-Public Use
  Company Number: None

PATIENT
  Age: 61 Year
  Sex: Female

DRUGS (1)
  1. ADM [Suspect]
     Active Substance: DOXORUBICIN

REACTIONS (6)
  - Mastectomy [None]
  - Malaise [None]
  - Skin graft failure [None]
  - Skin graft scar contracture [None]
  - Emotional distress [None]
  - Post procedural complication [None]

NARRATIVE: CASE EVENT DATE: 20130423
